FAERS Safety Report 7243259-8 (Version None)
Quarter: 2011Q1

REPORT INFORMATION
  Report Type: 
  Country: None (occurrence: None)
  Receive Date: 20110125
  Receipt Date: 20110121
  Transmission Date: 20110831
  Serious: Yes (Other)
  Sender: FDA-Public Use
  Company Number: US-AMGEN-QUU416839

PATIENT
  Age: 79 Year
  Sex: Male
  Weight: 67.2 kg

DRUGS (6)
  1. REPAGLINIDE [Concomitant]
     Dosage: UNK UNK, UNK
  2. PANTOPRAZOLE SODIUM [Concomitant]
     Dosage: UNK UNK, UNK
  3. JANUMET [Concomitant]
     Dosage: UNK UNK, UNK
  4. PANCREATIN [Concomitant]
     Dosage: UNK UNK, UNK
  5. NPLATE [Suspect]
     Indication: IDIOPATHIC THROMBOCYTOPENIC PURPURA
     Dosage: UNK UNK, QWK
     Route: 058
     Dates: start: 20090403, end: 20100527
  6. URSODEOXYCHOLIC ACID [Concomitant]
     Dosage: UNK UNK, UNK

REACTIONS (5)
  - CHILLS [None]
  - PYREXIA [None]
  - SYNCOPE [None]
  - BLOOD PRESSURE DECREASED [None]
  - FATIGUE [None]
